FAERS Safety Report 5156363-5 (Version None)
Quarter: 2006Q4

REPORT INFORMATION
  Report Type: 
  Country: None (occurrence: None)
  Receive Date: 20061122
  Receipt Date: 20061024
  Transmission Date: 20070319
  Serious: Yes (Death, Hospitalization)
  Sender: FDA-Public Use
  Company Number: HQWYE547525OCT06

PATIENT
  Sex: Male

DRUGS (5)
  1. ENBREL [Suspect]
     Indication: RHEUMATOID ARTHRITIS
     Route: 058
     Dates: start: 20040201, end: 20060910
  2. VEROSPIRON [Concomitant]
     Indication: HYPERTENSION
     Dosage: UNKNOWN
  3. PREDNISONUM [Concomitant]
     Indication: ARTHRITIS
     Dosage: UNKNOWN
  4. DOBUTAMINE HCL [Concomitant]
     Indication: CARDIOMYOPATHY
     Dosage: UNKNOWN
  5. FUROSEMIDE [Concomitant]
     Indication: HYPERTENSION
     Dosage: UNKNOWN

REACTIONS (11)
  - AMYLOIDOSIS [None]
  - ANURIA [None]
  - BRONCHOPNEUMONIA [None]
  - CARDIAC ARREST [None]
  - CARDIAC FAILURE [None]
  - ELECTROCARDIOGRAM ST SEGMENT DEPRESSION [None]
  - HYPOTENSION [None]
  - NEPHRITIS INTERSTITIAL [None]
  - PULMONARY OEDEMA [None]
  - SYNCOPE [None]
  - TACHYCARDIA [None]
